FAERS Safety Report 20951339 (Version 1)
Quarter: 2022Q2

REPORT INFORMATION
  Report Type: Spontaneous
  Country: US (occurrence: None)
  Receive Date: 20220610
  Receipt Date: 20220610
  Transmission Date: 20220720
  Serious: Yes (Life-Threatening, Other)
  Sender: FDA-Public Use
  Company Number: None

PATIENT
  Age: 29 Year
  Sex: Female
  Weight: 101.25 kg

DRUGS (12)
  1. GADAVIST [Suspect]
     Active Substance: GADOBUTROL
     Indication: Magnetic resonance imaging
     Dates: start: 20220609, end: 20220609
  2. VYVANSE [Concomitant]
     Active Substance: LISDEXAMFETAMINE DIMESYLATE
  3. SEROQUEL [Concomitant]
     Active Substance: QUETIAPINE FUMARATE
  4. LAMICTAL [Concomitant]
     Active Substance: LAMOTRIGINE
  5. TOPAMAX [Concomitant]
     Active Substance: TOPIRAMATE
  6. SINGULAIR [Concomitant]
     Active Substance: MONTELUKAST SODIUM
  7. LITHIUM [Concomitant]
     Active Substance: LITHIUM
  8. ADVAIR HFA [Concomitant]
     Active Substance: FLUTICASONE PROPIONATE\SALMETEROL XINAFOATE
  9. ALBUTEROL [Concomitant]
     Active Substance: ALBUTEROL
  10. ZOMIG [Concomitant]
     Active Substance: ZOLMITRIPTAN
  11. MELATONIN [Concomitant]
     Active Substance: MELATONIN
  12. VITAMIN D [Concomitant]
     Active Substance: VITAMIN D NOS

REACTIONS (4)
  - Ear pruritus [None]
  - Urticaria [None]
  - Erythema [None]
  - Dyspnoea [None]

NARRATIVE: CASE EVENT DATE: 20220609
